FAERS Safety Report 9153503 (Version 1)
Quarter: 2013Q1

REPORT INFORMATION
  Report Type: Spontaneous
  Country: US (occurrence: None)
  Receive Date: 20130306
  Receipt Date: 20130306
  Transmission Date: 20140127
  Serious: Yes (Hospitalization)
  Sender: FDA-Public Use
  Company Number: None

PATIENT
  Sex: Male

DRUGS (1)
  1. RANIBIZUMAB [Suspect]
     Indication: DIABETIC RETINAL OEDEMA
     Dosage: .05ML AS NEEDED INTRAVITREAL
     Dates: start: 20130104

REACTIONS (2)
  - Procedural site reaction [None]
  - Abscess [None]
